FAERS Safety Report 4677685-8 (Version None)
Quarter: 2005Q2

REPORT INFORMATION
  Report Type: 
  Country: None (occurrence: None)
  Receive Date: 20050527
  Receipt Date: 20050519
  Transmission Date: 20051028
  Serious: Yes (Other)
  Sender: FDA-Public Use
  Company Number: ENT 2005-0065

PATIENT
  Age: 79 Year
  Sex: Male

DRUGS (5)
  1. COMTESS (ENTACAPONE) [Suspect]
     Dosage: 1 DOSE FORM
     Route: 048
     Dates: start: 20050406, end: 20050411
  2. CENTRAL MANSION [Concomitant]
  3. EXELON [Concomitant]
  4. SINEMET CR [Concomitant]
  5. PONSTAN FORTE [Concomitant]

REACTIONS (3)
  - DYSAESTHESIA [None]
  - RASH [None]
  - URINE ABNORMALITY [None]
